FAERS Safety Report 9560816 (Version 1)
Quarter: 2013Q3

REPORT INFORMATION
  Report Type: Spontaneous
  Country: GB (occurrence: None)
  Receive Date: 20130925
  Receipt Date: 20130925
  Transmission Date: 20140515
  Serious: Yes (Other)
  Sender: FDA-Public Use
  Company Number: AUR-APL-2013-07752

PATIENT
  Age: 56 Year
  Sex: Male

DRUGS (3)
  1. RIBAVIRIN [Suspect]
     Indication: HEPATITIS C
     Route: 048
     Dates: start: 20121120
  2. TELAPREVIR [Suspect]
     Indication: HEPATITIS C
     Route: 048
     Dates: start: 20121120
  3. PEGINTERFERON ALFA-2B [Suspect]
     Indication: HEPATITIS C
     Route: 058
     Dates: start: 20121120

REACTIONS (11)
  - Joint stiffness [None]
  - Gait disturbance [None]
  - Activities of daily living impaired [None]
  - Increased tendency to bruise [None]
  - Rash [None]
  - Dyspnoea [None]
  - Dyspnoea [None]
  - Rash macular [None]
  - Anaemia [None]
  - Skin mass [None]
  - Depressed mood [None]
